FAERS Safety Report 23736412 (Version 1)
Quarter: 2024Q2

REPORT INFORMATION
  Report Type: Report from Study
  Country: CO (occurrence: None)
  Receive Date: 20240412
  Receipt Date: 20240412
  Transmission Date: 20240716
  Serious: Yes (Death)
  Sender: FDA-Public Use
  Company Number: 2019SF35011

PATIENT
  Age: 30339 Day
  Sex: Female

DRUGS (1)
  1. IRESSA [Suspect]
     Active Substance: GEFITINIB
     Indication: Lung neoplasm malignant
     Route: 048
     Dates: start: 20180116, end: 20190121

REACTIONS (1)
  - Depressed level of consciousness [Fatal]

NARRATIVE: CASE EVENT DATE: 20190623
